FAERS Safety Report 4831936-5 (Version None)
Quarter: 2005Q4

REPORT INFORMATION
  Report Type: 
  Country: None (occurrence: None)
  Receive Date: 20051116
  Receipt Date: 20051031
  Transmission Date: 20060501
  Serious: Yes (Other)
  Sender: FDA-Public Use
  Company Number: T05-CAN-03488-01

PATIENT
  Age: 56 Year
  Sex: Male

DRUGS (15)
  1. CELEXA [Suspect]
     Indication: DEPRESSION
     Dosage: 20 MG QD PO
     Route: 048
     Dates: start: 20050711, end: 20050808
  2. METHOTREXATE [Suspect]
     Indication: PSORIASIS
     Dosage: 20 MG QD PO
     Route: 048
     Dates: start: 20040601, end: 20050808
  3. LIPITOR [Suspect]
     Indication: HYPERLIPIDAEMIA
     Dosage: 40 MG QD PO
     Route: 048
     Dates: start: 20021226, end: 20050808
  4. ETODOLAC [Suspect]
     Indication: ARTHRITIS
     Dosage: 600 MG QD PO
     Route: 048
     Dates: start: 20021206, end: 20050808
  5. NORVASC [Suspect]
     Indication: HYPERTENSION
     Dosage: 5 MG QD PO
     Route: 048
     Dates: start: 20050808
  6. NORVASC [Suspect]
     Indication: HYPERTENSION
     Dosage: 10 MG QD PO
     Route: 048
     Dates: start: 20021226, end: 20050808
  7. ATENOLOL [Concomitant]
  8. SYNTHROID [Concomitant]
  9. LISINOPRIL [Concomitant]
  10. LOSEC (OMEPRAZOLE) [Concomitant]
  11. NITROLINGUAL PUMP (GLYCERYL TRINITRATE) [Concomitant]
  12. CARBAMAZEPINE [Concomitant]
  13. HYDROCHLOROTHIAZIDE [Concomitant]
  14. LORAZEPAM [Concomitant]
  15. FOLIC ACID [Concomitant]

REACTIONS (10)
  - ALANINE AMINOTRANSFERASE INCREASED [None]
  - ANOREXIA [None]
  - ASPARTATE AMINOTRANSFERASE DECREASED [None]
  - BLOOD ALKALINE PHOSPHATASE INCREASED [None]
  - CHILLS [None]
  - CONSTIPATION [None]
  - GAMMA-GLUTAMYLTRANSFERASE INCREASED [None]
  - MALAISE [None]
  - PYREXIA [None]
  - URINARY TRACT INFECTION [None]
